FAERS Safety Report 9432984 (Version 2)
Quarter: 2013Q3

REPORT INFORMATION
  Report Type: Spontaneous
  Country: IT (occurrence: IT)
  Receive Date: 20130731
  Receipt Date: 20130903
  Transmission Date: 20140515
  Serious: Yes (Life-Threatening, Hospitalization)
  Sender: FDA-Public Use
  Company Number: PHHY2013IT081427

PATIENT
  Age: 75 Year
  Sex: Male

DRUGS (8)
  1. BICALUTAMIDE [Suspect]
     Indication: PROSTATE CANCER
     Dosage: 50 MG, QD
     Route: 048
  2. AMLODIPINE [Concomitant]
  3. ENALAPRIL [Concomitant]
  4. LEUPRORELIN [Concomitant]
  5. ATORVASTATIN [Concomitant]
  6. BISOPROL [Concomitant]
  7. LANSOPRAZOLE [Concomitant]
  8. CARDIOASPIRIN [Concomitant]

REACTIONS (4)
  - Anaphylactic shock [Recovered/Resolved]
  - Dyspnoea [Recovered/Resolved]
  - Erythema [Recovered/Resolved]
  - Pruritus [Recovered/Resolved]
